FAERS Safety Report 5767885-8 (Version None)
Quarter: 2008Q2

REPORT INFORMATION
  Report Type: 
  Country: None (occurrence: None)
  Receive Date: 20080612
  Receipt Date: 20080603
  Transmission Date: 20081010
  Serious: Yes (Other)
  Sender: FDA-Public Use
  Company Number: CH-PFIZER INC-2008046892

PATIENT
  Age: 72 Year
  Sex: Female

DRUGS (4)
  1. SERTRALINE [Suspect]
     Dosage: DAILY DOSE:50MG
  2. DICLOFENAC [Suspect]
     Indication: PAIN
  3. ACETAMINOPHEN [Suspect]
     Indication: PAIN
  4. OXYCODONE HCL [Suspect]
     Indication: MUSCULOSKELETAL PAIN

REACTIONS (7)
  - DRY MOUTH [None]
  - FEELING ABNORMAL [None]
  - MUSCULOSKELETAL PAIN [None]
  - NAUSEA [None]
  - NIGHT SWEATS [None]
  - TREMOR [None]
  - VISUAL DISTURBANCE [None]
